FAERS Safety Report 8225807-4 (Version None)
Quarter: 2012Q1

REPORT INFORMATION
  Report Type: 
  Country: None (occurrence: None)
  Receive Date: 20120321
  Receipt Date: 20120316
  Transmission Date: 20120608
  Serious: Yes (Hospitalization, Other)
  Sender: FDA-Public Use
  Company Number: US-PFIZER INC-2011305499

PATIENT
  Sex: Male

DRUGS (6)
  1. LIPITOR [Concomitant]
     Indication: BLOOD CHOLESTEROL INCREASED
     Dosage: UNK
     Dates: start: 20070101
  2. WELLBUTRIN [Concomitant]
     Indication: MENTAL DISORDER
     Dosage: UNK
     Dates: start: 20050101
  3. CHANTIX [Suspect]
     Indication: SMOKING CESSATION THERAPY
     Dosage: 1 MG, UNK
     Dates: start: 20091109, end: 20091220
  4. SEROQUEL [Concomitant]
     Indication: MENTAL DISORDER
     Dosage: UNK
     Dates: start: 20070101, end: 20110101
  5. LEXAPRO [Concomitant]
     Indication: MENTAL DISORDER
     Dosage: 20 MG, UNK
     Dates: start: 20050101, end: 20110101
  6. ABILIFY [Concomitant]
     Indication: MENTAL DISORDER
     Dosage: UNK
     Dates: start: 20050101

REACTIONS (6)
  - BIPOLAR DISORDER [None]
  - SUICIDAL IDEATION [None]
  - MENTAL DISORDER [None]
  - ANXIETY [None]
  - EMOTIONAL DISTRESS [None]
  - DEPRESSION [None]
